FAERS Safety Report 7478878-7 (Version None)
Quarter: 2011Q2

REPORT INFORMATION
  Report Type: 
  Country: None (occurrence: None)
  Receive Date: 20110513
  Receipt Date: 20110505
  Transmission Date: 20111010
  Serious: Yes (Hospitalization)
  Sender: FDA-Public Use
  Company Number: ES-ROCHE-776335

PATIENT
  Age: 58 Year

DRUGS (8)
  1. CYCLOSPORINE [Suspect]
     Route: 065
  2. CYCLOSPORINE [Suspect]
     Dosage: REDUCED DOSAGE
     Route: 065
  3. MYCOPHENOLATE MOFETIL [Suspect]
     Dosage: REDUCED DOSAGE
     Route: 065
  4. MYCOPHENOLATE MOFETIL [Suspect]
     Route: 065
  5. PREDNISONE [Suspect]
     Dosage: REDUCED DOSAGE
     Route: 065
  6. PREDNISONE [Suspect]
     Route: 065
  7. ANTI-THYMOCYTE GLOBULIN NOS [Suspect]
     Route: 065
  8. ANTI-THYMOCYTE GLOBULIN NOS [Suspect]
     Dosage: REDUCED DOSAGE
     Route: 065

REACTIONS (2)
  - PNEUMONITIS [None]
  - HERPES ZOSTER [None]
